FAERS Safety Report 6946595-5 (Version None)
Quarter: 2010Q3

REPORT INFORMATION
  Report Type: 
  Country: None (occurrence: None)
  Receive Date: 20100824
  Receipt Date: 20100810
  Transmission Date: 20110219
  Serious: Yes (Hospitalization)
  Sender: FDA-Public Use
  Company Number: 2009AC000283

PATIENT
  Age: 59 Year
  Sex: Female

DRUGS (50)
  1. DIGOXIN [Suspect]
     Dosage: 0.125 MG;QD; PO
     Route: 048
     Dates: start: 20070501
  2. DIGOXIN [Suspect]
     Dosage: ; QD; PO
     Route: 048
     Dates: start: 19950207
  3. DIGOXIN [Suspect]
     Dosage: 125 MG; QD; PO
     Route: 048
     Dates: start: 20020221, end: 20051118
  4. DIGOXIN [Suspect]
     Dosage: 0.125 MG; QD; PO
     Route: 048
     Dates: start: 20070521, end: 20080226
  5. DIGOXIN [Suspect]
     Dosage: 0.125 MG; QD; PO
     Route: 048
     Dates: start: 20081113, end: 20090928
  6. ULTRACET [Concomitant]
  7. LANTUS [Concomitant]
  8. PLAVIX [Concomitant]
  9. CHANTIX [Concomitant]
  10. DEPAKOTE [Concomitant]
  11. LOPID [Concomitant]
  12. MICRO-K [Concomitant]
  13. LASIX [Concomitant]
  14. XANAX [Concomitant]
  15. GENTAMICIN [Concomitant]
  16. PREMARIN [Concomitant]
  17. IMDUR [Concomitant]
  18. EFFEXOR [Concomitant]
  19. PREVACID [Concomitant]
  20. LANTUS [Concomitant]
  21. ATROVENT [Concomitant]
  22. ATIVAN [Concomitant]
  23. VERAPAMIL [Concomitant]
  24. XANEX [Concomitant]
  25. OXYCONTIN [Concomitant]
  26. AMITRIPTYLINE HYDROCHLORIDE [Concomitant]
  27. NYSTAIN [Concomitant]
  28. CLONAZEPAM [Concomitant]
  29. ALPRAZOLAM [Concomitant]
  30. MORPHINE [Concomitant]
  31. NICODERM [Concomitant]
  32. OXYCODONE [Concomitant]
  33. FUROSEMIDE [Concomitant]
  34. PREVACID [Concomitant]
  35. SUCRALFATE [Concomitant]
  36. TRAMADOL HCL [Concomitant]
  37. PLAVIX [Concomitant]
  38. GABAPENTIN [Concomitant]
  39. HYDROXYZINE [Concomitant]
  40. TEMAZEPAM [Concomitant]
  41. ACETAMINOPHEN [Concomitant]
  42. KLOR-CON [Concomitant]
  43. LORAZEPAM [Concomitant]
  44. ZOLPIDEM [Concomitant]
  45. VERAPAMIL [Concomitant]
  46. ADENOSINE [Concomitant]
  47. TORADOL [Concomitant]
  48. DILAUDID [Concomitant]
  49. DOXYCYCLINE HCL [Concomitant]
  50. OMEPRAZOLE [Concomitant]

REACTIONS (35)
  - ABDOMINAL PAIN [None]
  - ABDOMINAL PAIN UPPER [None]
  - AMNESIA [None]
  - ANXIETY [None]
  - ASTHENIA [None]
  - ATRIAL TACHYCARDIA [None]
  - ATRIOVENTRICULAR BLOCK FIRST DEGREE [None]
  - BACK PAIN [None]
  - CONFUSIONAL STATE [None]
  - CONTUSION [None]
  - CYSTITIS [None]
  - DECUBITUS ULCER [None]
  - DELUSION [None]
  - DEPRESSION [None]
  - DIABETES MELLITUS INADEQUATE CONTROL [None]
  - DIARRHOEA [None]
  - DISORIENTATION [None]
  - DRUG HYPERSENSITIVITY [None]
  - DRUG INTOLERANCE [None]
  - ECONOMIC PROBLEM [None]
  - ELECTROCARDIOGRAM ST-T SEGMENT DEPRESSION [None]
  - FALL [None]
  - FATIGUE [None]
  - HALLUCINATION [None]
  - HYPONATRAEMIA [None]
  - HYPOTENSION [None]
  - INCONTINENCE [None]
  - INJURY [None]
  - INSOMNIA [None]
  - MULTIPLE DRUG OVERDOSE [None]
  - MYOCARDIAL INFARCTION [None]
  - TACHYCARDIA PAROXYSMAL [None]
  - THERAPEUTIC AGENT TOXICITY [None]
  - TROPONIN INCREASED [None]
  - VISUAL IMPAIRMENT [None]
